FAERS Safety Report 23654627 (Version 1)
Quarter: 2024Q1

REPORT INFORMATION
  Report Type: Spontaneous
  Country: US (occurrence: US)
  Receive Date: 20240320
  Receipt Date: 20240320
  Transmission Date: 20240409
  Serious: Yes (Other)
  Sender: FDA-Public Use
  Company Number: US-AMGEN-USASP2024052388

PATIENT

DRUGS (3)
  1. BEVACIZUMAB [Suspect]
     Active Substance: BEVACIZUMAB
     Indication: Retinopathy of prematurity
     Dosage: 0.500 MILLIGRAM
  2. BEVACIZUMAB [Suspect]
     Active Substance: BEVACIZUMAB
     Dosage: 0.250 MILLIGRAM
  3. BEVACIZUMAB [Suspect]
     Active Substance: BEVACIZUMAB
     Dosage: 0.125 MILLIGRAM

REACTIONS (4)
  - Retinopathy of prematurity [Unknown]
  - Drug effective for unapproved indication [Unknown]
  - Therapeutic product effect incomplete [Unknown]
  - Off label use [Unknown]
